FAERS Safety Report 6746869-7 (Version None)
Quarter: 2010Q2

REPORT INFORMATION
  Report Type: 
  Country: None (occurrence: None)
  Receive Date: 20100528
  Receipt Date: 20100218
  Transmission Date: 20101027
  Serious: No
  Sender: FDA-Public Use
  Company Number: US-ASTRAZENECA-2010SE07534

PATIENT
  Sex: Female

DRUGS (10)
  1. PRILOSEC OTC [Suspect]
     Indication: GASTROOESOPHAGEAL REFLUX DISEASE
     Route: 048
  2. PRILOSEC OTC [Suspect]
     Indication: OESOPHAGEAL ULCER
     Route: 048
  3. PRILOSEC OTC [Suspect]
     Route: 048
  4. PRILOSEC OTC [Suspect]
     Route: 048
  5. ZANTAC [Concomitant]
  6. LIPITOR [Concomitant]
  7. DILTIAZEM HCL [Concomitant]
  8. HYZAAR [Concomitant]
  9. PLAVIX [Concomitant]
  10. AMARYL [Concomitant]

REACTIONS (4)
  - DRUG INEFFECTIVE FOR UNAPPROVED INDICATION [None]
  - HAEMOPTYSIS [None]
  - INAPPROPRIATE SCHEDULE OF DRUG ADMINISTRATION [None]
  - INCORRECT DRUG ADMINISTRATION DURATION [None]
